FAERS Safety Report 4881035-1 (Version None)
Quarter: 2005Q4

REPORT INFORMATION
  Report Type: 
  Country: None (occurrence: None)
  Receive Date: 20051223
  Receipt Date: 20051024
  Transmission Date: 20060501
  Serious: No
  Sender: FDA-Public Use
  Company Number: 05P-163-0315020-00

PATIENT
  Age: 52 Year
  Sex: Male
  Weight: 86.1834 kg

DRUGS (7)
  1. HUMIRA [Suspect]
     Indication: PAIN
     Dosage: 40 MG, 1 IN 2 WK, SUBCUTANEOUS;  40 MG, SUBCUTANEOUS
     Route: 058
     Dates: start: 20050301, end: 20050901
  2. HUMIRA [Suspect]
     Indication: PSORIASIS
     Dosage: 40 MG, 1 IN 2 WK, SUBCUTANEOUS;  40 MG, SUBCUTANEOUS
     Route: 058
     Dates: start: 20050301, end: 20050901
  3. HUMIRA [Suspect]
     Indication: PAIN
     Dosage: 40 MG, 1 IN 2 WK, SUBCUTANEOUS;  40 MG, SUBCUTANEOUS
     Route: 058
     Dates: start: 20051010
  4. HUMIRA [Suspect]
     Indication: PSORIASIS
     Dosage: 40 MG, 1 IN 2 WK, SUBCUTANEOUS;  40 MG, SUBCUTANEOUS
     Route: 058
     Dates: start: 20051010
  5. CITALOPRAM HYDROBROMIDE [Concomitant]
  6. TRAZADONE [Concomitant]
  7. PANTOPRAZOLE [Concomitant]

REACTIONS (1)
  - PAIN [None]
